FAERS Safety Report 9253357 (Version 1)
Quarter: 2013Q2

REPORT INFORMATION
  Report Type: Spontaneous
  Country: US (occurrence: US)
  Receive Date: 20130425
  Receipt Date: 20130425
  Transmission Date: 20140414
  Serious: No
  Sender: FDA-Public Use
  Company Number: US-B.I. PHARMACEUTICALS,INC./RIDGEFIELD-2013-BI-10668BP

PATIENT
  Age: 51 Year
  Sex: Female

DRUGS (8)
  1. COMBIVENT [Suspect]
     Indication: CHRONIC OBSTRUCTIVE PULMONARY DISEASE
     Dosage: 2 PUF
     Route: 055
     Dates: start: 20130318, end: 20130318
  2. SINGULAIR [Concomitant]
     Dosage: 10 MG
     Route: 048
  3. NEURONTIN [Concomitant]
     Dosage: 2400 MG
     Route: 048
  4. PROTONIX [Concomitant]
     Dosage: 40 MG
     Route: 048
  5. MELOXICAM [Concomitant]
     Dosage: 15 MG
     Route: 048
  6. ADVAIR [Concomitant]
     Route: 055
  7. CYCLOBENZAPRINE [Concomitant]
     Route: 048
  8. VENTOLIN HF [Concomitant]
     Route: 055

REACTIONS (2)
  - Pharyngeal oedema [Recovered/Resolved]
  - Swollen tongue [Recovered/Resolved]
